FAERS Safety Report 25544230 (Version 1)
Quarter: 2025Q3

REPORT INFORMATION
  Report Type: Spontaneous
  Country: US (occurrence: US)
  Receive Date: 20250711
  Receipt Date: 20250711
  Transmission Date: 20251021
  Serious: No
  Sender: CHATTEM
  Company Number: US-OPELLA-2025OHG018565

PATIENT

DRUGS (1)
  1. ALLEGRA HIVES 24HR [Suspect]
     Active Substance: FEXOFENADINE HYDROCHLORIDE
     Indication: Urticaria
     Route: 065

REACTIONS (4)
  - Dry mouth [Unknown]
  - Therapeutic product effect delayed [Unknown]
  - Product packaging difficult to open [Unknown]
  - Wrong technique in product usage process [Unknown]
